FAERS Safety Report 6869150-4 (Version None)
Quarter: 2010Q3

REPORT INFORMATION
  Report Type: 
  Country: None (occurrence: None)
  Receive Date: 20100722
  Receipt Date: 20080709
  Transmission Date: 20110219
  Serious: No
  Sender: FDA-Public Use
  Company Number: US-PFIZER INC-2008057342

PATIENT
  Sex: Female
  Weight: 77.272 kg

DRUGS (10)
  1. CHANTIX [Suspect]
     Indication: SMOKING CESSATION THERAPY
     Route: 048
     Dates: start: 20080601
  2. METHOCARBAMOL [Concomitant]
  3. SULINDAC [Concomitant]
  4. AMBIEN [Concomitant]
  5. NEXIUM [Concomitant]
  6. FERROUS SULFATE [Concomitant]
  7. NEURONTIN [Concomitant]
  8. CELEXA [Concomitant]
  9. OXYCODONE HCL AND ACETAMINOPHEN [Concomitant]
  10. PERCOCET [Concomitant]

REACTIONS (2)
  - FEELING ABNORMAL [None]
  - NAUSEA [None]
